FAERS Safety Report 10160138 (Version 1)
Quarter: 2014Q2

REPORT INFORMATION
  Report Type: Spontaneous
  Country: FR (occurrence: FR)
  Receive Date: 20140508
  Receipt Date: 20140508
  Transmission Date: 20141212
  Serious: Yes (Other)
  Sender: FDA-Public Use
  Company Number: FR-TEVA-479571ISR

PATIENT
  Age: 54 Year
  Sex: Female

DRUGS (2)
  1. PACLITAXEL TEVA [Suspect]
     Indication: OVARIAN CANCER
     Dosage: 246 MILLIGRAM DAILY;
     Route: 042
     Dates: start: 20100412, end: 20100412
  2. CARBOPLATINE SANDOZ [Suspect]
     Indication: OVARIAN CANCER
     Dosage: 880 MILLIGRAM DAILY;
     Route: 042
     Dates: start: 20100412, end: 20100412

REACTIONS (2)
  - Drug hypersensitivity [Recovered/Resolved]
  - Dermatitis exfoliative [Recovered/Resolved]
